FAERS Safety Report 8489367-5 (Version None)
Quarter: 2012Q3

REPORT INFORMATION
  Report Type: 
  Country: None (occurrence: None)
  Receive Date: 20120705
  Receipt Date: 20120626
  Transmission Date: 20120928
  Serious: Yes (Hospitalization)
  Sender: FDA-Public Use
  Company Number: BR-ASTRAZENECA-2012SE43528

PATIENT
  Age: 56 Year
  Sex: Female

DRUGS (5)
  1. ASPIRIN [Concomitant]
     Route: 048
  2. ATORVASTATIN [Concomitant]
     Route: 048
  3. BRILINTA [Suspect]
     Indication: ACUTE MYOCARDIAL INFARCTION
     Route: 048
  4. AMLODIPINE BESYLATE [Concomitant]
     Route: 048
  5. ATENOLOL [Suspect]
     Route: 048

REACTIONS (3)
  - PRURITUS [None]
  - ACUTE MYOCARDIAL INFARCTION [None]
  - RASH GENERALISED [None]
